FAERS Safety Report 5713770-7 (Version None)
Quarter: 2008Q2

REPORT INFORMATION
  Report Type: 
  Country: None (occurrence: None)
  Receive Date: 20080421
  Receipt Date: 20080411
  Transmission Date: 20081010
  Serious: Yes (Death)
  Sender: FDA-Public Use
  Company Number: 163-20785-08040964

PATIENT
  Age: 41 Year
  Sex: Male

DRUGS (1)
  1. THALOMID [Suspect]
     Indication: LEPROMATOUS LEPROSY
     Dosage: 100 MG, 1 IN 1 D, ORAL
     Route: 048
     Dates: start: 20080213

REACTIONS (1)
  - HEPATIC FAILURE [None]
